FAERS Safety Report 7270499-4 (Version None)
Quarter: 2011Q1

REPORT INFORMATION
  Report Type: 
  Country: None (occurrence: None)
  Receive Date: 20110202
  Receipt Date: 20110125
  Transmission Date: 20110831
  Serious: Yes (Death, Hospitalization)
  Sender: FDA-Public Use
  Company Number: IN-ELI_LILLY_AND_COMPANY-IN201101006764

PATIENT
  Age: 76 Year
  Sex: Male

DRUGS (2)
  1. ANTIBIOTICS [Concomitant]
  2. XIGRIS [Suspect]
     Indication: SEPSIS
     Dosage: UNK, UNKNOWN
     Dates: start: 20110121

REACTIONS (3)
  - MULTI-ORGAN FAILURE [None]
  - PLATELET COUNT DECREASED [None]
  - INTERNATIONAL NORMALISED RATIO INCREASED [None]
